FAERS Safety Report 21055656 (Version 1)
Quarter: 2022Q3

REPORT INFORMATION
  Report Type: Spontaneous
  Country: DK (occurrence: DK)
  Receive Date: 20220708
  Receipt Date: 20220708
  Transmission Date: 20221026
  Serious: Yes (Death)
  Sender: FDA-Public Use
  Company Number: None

PATIENT
  Age: 64 Year
  Sex: Male

DRUGS (3)
  1. ALLOPURINOL [Suspect]
     Active Substance: ALLOPURINOL
     Indication: Gout
     Dosage: 400 MILLIGRAM DAILY; DOSAGE WAS INCREASED TO 400 MG ONCE DAILY 03AUG2017?STRENGTH: UNKNOWN,
     Route: 048
     Dates: start: 201706
  2. PREDNISOLONE [Concomitant]
     Active Substance: PREDNISOLONE
     Indication: Arthralgia
     Dosage: UNIT DOSE 25 MG, FREQUENCY TIME 1 DAYS
     Dates: start: 20170803
  3. COLCHICINE [Concomitant]
     Active Substance: COLCHICINE
     Indication: Gout
     Dosage: STRENGTH: UNKNOWN,UNIT DOSE 1.5MG, FREQUENCY TIME 1 DAYS
     Dates: start: 20170803

REACTIONS (2)
  - Dyspnoea [Fatal]
  - Pulmonary embolism [Fatal]

NARRATIVE: CASE EVENT DATE: 20170807
